FAERS Safety Report 13367659 (Version 3)
Quarter: 2017Q2

REPORT INFORMATION
  Report Type: Spontaneous
  Country: US (occurrence: US)
  Receive Date: 20170324
  Receipt Date: 20170417
  Transmission Date: 20170830
  Serious: Yes (Death)
  Sender: FDA-Public Use
  Company Number: US-ASTELLAS-2017US011575

PATIENT
  Age: 81 Year
  Sex: Male

DRUGS (14)
  1. PROCRIT [Concomitant]
     Active Substance: ERYTHROPOIETIN
     Indication: HAEMOGLOBIN ABNORMAL
  2. OXYBUTYNIN [Concomitant]
     Active Substance: OXYBUTYNIN
     Indication: PRODUCT USED FOR UNKNOWN INDICATION
     Route: 065
  3. GABAPENTIN. [Concomitant]
     Active Substance: GABAPENTIN
     Indication: PRODUCT USED FOR UNKNOWN INDICATION
     Route: 065
  4. PROCRIT [Concomitant]
     Active Substance: ERYTHROPOIETIN
     Indication: ANAEMIA
     Dosage: 40000, ONCE WEEKLY
     Route: 065
  5. POTASSIUM CHLORIDE. [Concomitant]
     Active Substance: POTASSIUM CHLORIDE
     Indication: PRODUCT USED FOR UNKNOWN INDICATION
     Route: 065
  6. ZINC. [Concomitant]
     Active Substance: ZINC
     Indication: PRODUCT USED FOR UNKNOWN INDICATION
     Route: 065
  7. TORSEMIDE. [Concomitant]
     Active Substance: TORSEMIDE
     Indication: RENAL DISORDER
     Route: 065
  8. VITAMIN D3 [Concomitant]
     Active Substance: CHOLECALCIFEROL
     Indication: PRODUCT USED FOR UNKNOWN INDICATION
     Route: 065
  9. ROPINIROLE. [Concomitant]
     Active Substance: ROPINIROLE
     Indication: PRODUCT USED FOR UNKNOWN INDICATION
     Route: 065
  10. LUPRON [Concomitant]
     Active Substance: LEUPROLIDE ACETATE
     Indication: PRODUCT USED FOR UNKNOWN INDICATION
     Dosage: 22.5 MG, EVERY 3 MONTHS
     Route: 065
  11. LASIX [Concomitant]
     Active Substance: FUROSEMIDE
     Indication: RENAL DISORDER
     Dosage: UNK UNK, UNKNOWN FREQ.
     Route: 065
  12. METOLAZONE. [Concomitant]
     Active Substance: METOLAZONE
     Indication: RENAL DISORDER
     Dosage: UNK UNK, UNKNOWN FREQ.
     Route: 065
  13. XTANDI [Suspect]
     Active Substance: ENZALUTAMIDE
     Indication: PROSTATE CANCER METASTATIC
     Route: 048
     Dates: start: 20170214, end: 20170307
  14. PROCRIT [Concomitant]
     Active Substance: ERYTHROPOIETIN
     Indication: CHRONIC KIDNEY DISEASE

REACTIONS (2)
  - Fatigue [Unknown]
  - Death [Fatal]

NARRATIVE: CASE EVENT DATE: 201703
